FAERS Safety Report 9922447 (Version 1)
Quarter: 2014Q1

REPORT INFORMATION
  Report Type: Spontaneous
  Country: US (occurrence: US)
  Receive Date: 20140225
  Receipt Date: 20140225
  Transmission Date: 20141002
  Serious: Yes (Other)
  Sender: FDA-Public Use
  Company Number: US-PFIZER INC-2014044476

PATIENT
  Age: 55 Year
  Sex: Male

DRUGS (1)
  1. TEMSIROLIMUS [Suspect]
     Indication: RENAL CELL CARCINOMA
     Dosage: 25 MG, WEEKLY

REACTIONS (3)
  - Diabetes mellitus [Unknown]
  - Transaminases increased [Recovered/Resolved]
  - Dyslipidaemia [Unknown]
